FAERS Safety Report 20695840 (Version 5)
Quarter: 2023Q4

REPORT INFORMATION
  Report Type: Report from Study
  Country: DE (occurrence: DE)
  Receive Date: 20220411
  Receipt Date: 20231016
  Transmission Date: 20240109
  Serious: Yes (Hospitalization, Other)
  Sender: FDA-Public Use
  Company Number: DE-BoehringerIngelheim-2022-BI-164476

PATIENT
  Age: 89 Year
  Sex: Female
  Weight: 68 kg

DRUGS (9)
  1. EMPAGLIFLOZIN [Suspect]
     Active Substance: EMPAGLIFLOZIN
     Indication: Acute myocardial infarction
     Route: 048
     Dates: start: 20210825
  2. TORSEMIDE [Suspect]
     Active Substance: TORSEMIDE
     Indication: Product used for unknown indication
     Route: 048
     Dates: start: 20220303, end: 20220407
  3. CLOPIDOGREL [Concomitant]
     Active Substance: CLOPIDOGREL BISULFATE
     Indication: Product used for unknown indication
     Dosage: MEDICATION IS STILL ONGOING
     Route: 048
     Dates: start: 20210822, end: 20220822
  4. PANTOPRAZOLE SODIUM [Concomitant]
     Active Substance: PANTOPRAZOLE SODIUM
     Indication: Product used for unknown indication
     Dosage: MEDICATION IS STILL ONGOING
     Route: 048
     Dates: start: 20210822
  5. ATORVASTATIN [Concomitant]
     Active Substance: ATORVASTATIN
     Indication: Product used for unknown indication
     Dosage: MEDICATION IS STILL ONGOING
     Route: 048
     Dates: start: 20210821
  6. EZETIMIB  10MG [Concomitant]
     Indication: Product used for unknown indication
     Dosage: MEDICATION IS STILL ONGOING
     Route: 048
     Dates: start: 20210822
  7. METOPROLOL 95MG [Concomitant]
     Indication: Product used for unknown indication
     Dosage: MEDICATION IS STILL ONGOING
     Route: 048
     Dates: start: 20220303
  8. ATORVASTATIN [Concomitant]
     Active Substance: ATORVASTATIN
     Indication: Product used for unknown indication
     Route: 048
     Dates: start: 20210821
  9. ASPIRIN [Concomitant]
     Active Substance: ASPIRIN
     Indication: Product used for unknown indication
     Dosage: MEDICATION IS STILL ONGOING
     Route: 048
     Dates: start: 20210822

REACTIONS (1)
  - Pancreatitis [Recovered/Resolved]

NARRATIVE: CASE EVENT DATE: 20220406
